FAERS Safety Report 24744972 (Version 1)
Quarter: 2024Q4

REPORT INFORMATION
  Report Type: Report from Study
  Country: RU (occurrence: RU)
  Receive Date: 20241217
  Receipt Date: 20241217
  Transmission Date: 20250115
  Serious: Yes (Other)
  Sender: FOUNDATION CONSUMER HEALTHCARE
  Company Number: RU-RICHTER-2024-GR-013778

PATIENT
  Age: 20 Year
  Sex: Female

DRUGS (1)
  1. LEVONORGESTREL [Suspect]
     Active Substance: LEVONORGESTREL
     Indication: Product used for unknown indication
     Dosage: ONE TABLET BY MOUTH ONCE, WITH 2ND TABLET TAKEN 12 HOURS LATER
     Route: 048

REACTIONS (4)
  - Acne [Unknown]
  - Menstruation delayed [Unknown]
  - Malignant ovarian cyst [Unknown]
  - Inappropriate schedule of product administration [Unknown]
